FAERS Safety Report 9286511 (Version 2)
Quarter: 2013Q2

REPORT INFORMATION
  Report Type: Spontaneous
  Country: US (occurrence: None)
  Receive Date: 20130503
  Receipt Date: 20130523
  Transmission Date: 20140414
  Serious: Yes (Hospitalization)
  Sender: FDA-Public Use
  Company Number: AUR-APL-2013-03579

PATIENT
  Age: 59 Year
  Sex: Male
  Weight: 120 kg

DRUGS (5)
  1. METFORMIN [Suspect]
     Indication: DIABETES MELLITUS
     Dosage: 2000 MG (1000 MG, 2 IN 1 D)
  2. XANAX XR [Suspect]
     Indication: DEPRESSION
     Dosage: 1 D
  3. PRISTIQ (DESVENLAFAXINE SUCCINATE) [Suspect]
     Indication: DEPRESSION
  4. PRISTIQ (DESVENLAFAXINE SUCCINATE) [Suspect]
     Indication: BIPOLAR DISORDER
  5. KLONOPIN [Suspect]
     Indication: ANXIETY
     Dosage: STOPPED

REACTIONS (12)
  - Drug dose omission [None]
  - Hypoaesthesia [None]
  - Depression [None]
  - Hypoaesthesia [None]
  - Hypoaesthesia [None]
  - Dysstasia [None]
  - Paraesthesia [None]
  - Sensation of pressure [None]
  - Glycosylated haemoglobin increased [None]
  - Hepatic enzyme increased [None]
  - Treatment noncompliance [None]
  - Incorrect dose administered [None]
